FAERS Safety Report 6160496-4 (Version None)
Quarter: 2009Q2

REPORT INFORMATION
  Report Type: 
  Country: None (occurrence: None)
  Receive Date: 20090416
  Receipt Date: 20090407
  Transmission Date: 20091009
  Serious: Yes (Hospitalization)
  Sender: FDA-Public Use
  Company Number: 2009SP001843

PATIENT
  Age: 59 Year
  Sex: Male
  Weight: 86.5 kg

DRUGS (2)
  1. TEMODAL [Suspect]
     Indication: GLIOBLASTOMA MULTIFORME
     Dosage: 200 MG/M2;
     Dates: start: 20081215, end: 20081219
  2. TEMODAL [Suspect]
     Indication: GLIOBLASTOMA MULTIFORME
     Dosage: 200 MG/M2;
     Dates: start: 20080330

REACTIONS (2)
  - CHOLECYSTITIS [None]
  - PANCREATITIS [None]
